FAERS Safety Report 23908945 (Version 2)
Quarter: 2024Q2

REPORT INFORMATION
  Report Type: Spontaneous
  Country: ES (occurrence: ES)
  Receive Date: 20240528
  Receipt Date: 20240624
  Transmission Date: 20240716
  Serious: Yes (Hospitalization, Other)
  Sender: FDA-Public Use
  Company Number: ES-UCBSA-2023054512

PATIENT
  Age: 44 Year
  Sex: Male
  Weight: 74 kg

DRUGS (4)
  1. LACOSAMIDE [Suspect]
     Active Substance: LACOSAMIDE
     Indication: Product used for unknown indication
     Dosage: UNK
     Route: 065
  2. KEPPRA [Suspect]
     Active Substance: LEVETIRACETAM
     Indication: Product used for unknown indication
     Dosage: UNK
     Route: 065
  3. DEXAMETHASONE [Suspect]
     Active Substance: DEXAMETHASONE
     Indication: Product used for unknown indication
     Dosage: UNK; FORTECORTIN [DEXAMETHASONE ACETATE]
     Route: 065
  4. PEMAZYRE [Concomitant]
     Active Substance: PEMIGATINIB
     Indication: Glioblastoma
     Route: 048
     Dates: start: 20230928, end: 20231103

REACTIONS (1)
  - Drug withdrawal convulsions [Not Recovered/Not Resolved]

NARRATIVE: CASE EVENT DATE: 20231029
